FAERS Safety Report 7206197-2 (Version None)
Quarter: 2010Q4

REPORT INFORMATION
  Report Type: 
  Country: None (occurrence: None)
  Receive Date: 20101229
  Receipt Date: 20101229
  Transmission Date: 20110411
  Serious: No
  Sender: FDA-Public Use
  Company Number: None

PATIENT
  Age: 68 Year
  Sex: Male
  Weight: 76.2043 kg

DRUGS (1)
  1. ANDROGEL [Suspect]
     Indication: BLOOD TESTOSTERONE ABNORMAL
     Dosage: 5G QD TOPICAL
     Route: 061
     Dates: start: 20101203

REACTIONS (1)
  - PRURITUS GENERALISED [None]
